FAERS Safety Report 8464575-8 (Version None)
Quarter: 2012Q2

REPORT INFORMATION
  Report Type: 
  Country: None (occurrence: None)
  Receive Date: 20120620
  Receipt Date: 20120620
  Transmission Date: 20120825
  Serious: No
  Sender: FDA-Public Use
  Company Number: None

PATIENT
  Sex: Female

DRUGS (2)
  1. PEGASYS [Suspect]
     Dosage: 180MCG Q 7 DAYS SQ
     Route: 058
     Dates: start: 20120306, end: 20120328
  2. RIBAVIRIN [Concomitant]

REACTIONS (5)
  - GAIT DISTURBANCE [None]
  - UNEVALUABLE EVENT [None]
  - SPEECH DISORDER [None]
  - NAUSEA [None]
  - NERVOUSNESS [None]
